FAERS Safety Report 25072514 (Version 1)
Quarter: 2025Q1

REPORT INFORMATION
  Report Type: Spontaneous
  Country: DE (occurrence: DE)
  Receive Date: 20250313
  Receipt Date: 20250313
  Transmission Date: 20250409
  Serious: Yes (Hospitalization)
  Sender: ORGANON
  Company Number: None

PATIENT
  Age: 21 Year
  Sex: Male

DRUGS (4)
  1. MONTELUKAST SODIUM [Suspect]
     Active Substance: MONTELUKAST SODIUM
     Indication: Dyspnoea
     Dosage: 10MG IN THE MORNING PER DAY FOR ABOUT HALF A YEAR
     Dates: start: 2024
  2. KETOTIFEN [Concomitant]
     Active Substance: KETOTIFEN
     Dosage: 1MG IN THE MORNING AND EVENING
  3. FAMOTIDINE [Concomitant]
     Active Substance: FAMOTIDINE
     Dosage: 40MG IN THE MORNING AND EVENING
  4. CLONIDINE [Concomitant]
     Active Substance: CLONIDINE
     Indication: Blood pressure abnormal
     Dosage: 150 MICROGRAM, QD

REACTIONS (4)
  - Aggression [Unknown]
  - Anger [Unknown]
  - Corporal injury [Unknown]
  - Behaviour disorder [Unknown]
